FAERS Safety Report 5826301-8 (Version None)
Quarter: 2008Q3

REPORT INFORMATION
  Report Type: 
  Country: None (occurrence: None)
  Receive Date: 20080729
  Receipt Date: 20080724
  Transmission Date: 20090109
  Serious: Yes (Disabling)
  Sender: FDA-Public Use
  Company Number: DE-MERCK-0805DEU00087

PATIENT
  Age: 55 Year
  Sex: Male

DRUGS (2)
  1. SINGULAIR [Suspect]
     Indication: ASTHMA
     Route: 048
     Dates: start: 20080115, end: 20080101
  2. SINGULAIR [Suspect]
     Route: 048
     Dates: start: 20080101, end: 20080430

REACTIONS (1)
  - TRIGEMINAL NEURALGIA [None]
